FAERS Safety Report 4401670-4 (Version None)
Quarter: 2004Q3

REPORT INFORMATION
  Report Type: 
  Country: None (occurrence: None)
  Receive Date: 20040719
  Receipt Date: 20040608
  Transmission Date: 20050211
  Serious: Yes (Hospitalization)
  Sender: FDA-Public Use
  Company Number: US-GLAXOSMITHKLINE-A0513919A

PATIENT
  Sex: Female

DRUGS (15)
  1. LOTRONEX [Suspect]
     Indication: DRUG USE FOR UNKNOWN INDICATION
     Dosage: .5MG ALTERNATE DAYS
     Route: 048
     Dates: start: 20040510
  2. ALPHA LIPOIC ACID [Concomitant]
     Dosage: 600MG PER DAY
  3. ATROVENT [Concomitant]
  4. VITAMIN E [Concomitant]
     Dosage: 400MG PER DAY
  5. VITAMIN B COMPLEX CAP [Concomitant]
  6. VITAMIN C [Concomitant]
  7. PAPAVERINE [Concomitant]
     Dosage: 150MG PER DAY
  8. DILTIAZEM [Concomitant]
  9. VASOTEC [Concomitant]
  10. MAXAIR [Concomitant]
  11. CYTOMEL [Concomitant]
  12. GLUCOPHAGE [Concomitant]
  13. HYDROCHLOROTHIAZIDE [Concomitant]
  14. CHROMIUM [Concomitant]
  15. ALLERGY SHOT [Concomitant]

REACTIONS (2)
  - HAEMORRHOIDS [None]
  - RECTAL HAEMORRHAGE [None]
